FAERS Safety Report 19367141 (Version 1)
Quarter: 2021Q2

REPORT INFORMATION
  Report Type: Spontaneous
  Country: US (occurrence: US)
  Receive Date: 20210603
  Receipt Date: 20210603
  Transmission Date: 20210717
  Serious: No
  Sender: FDA-Public Use
  Company Number: US-BAYER-2021-147478

PATIENT
  Sex: Female

DRUGS (1)
  1. CLIMARA [Suspect]
     Active Substance: ESTRADIOL
     Indication: HORMONE REPLACEMENT THERAPY
     Dosage: UNK
     Route: 062

REACTIONS (7)
  - Incorrect product administration duration [None]
  - Wrong technique in device usage process [None]
  - Adverse drug reaction [None]
  - Product prescribing issue [None]
  - Wrong technique in product usage process [None]
  - Device adhesion issue [None]
  - Adverse reaction [None]
